FAERS Safety Report 23512065 (Version 1)
Quarter: 2024Q1

REPORT INFORMATION
  Report Type: Report from Study
  Country: CA (occurrence: CA)
  Receive Date: 20240212
  Receipt Date: 20240212
  Transmission Date: 20240410
  Serious: Yes (Death, Other)
  Sender: FDA-Public Use
  Company Number: CA-TAKEDA-2024TUS012763

PATIENT
  Sex: Female

DRUGS (3)
  1. VEDOLIZUMAB [Suspect]
     Active Substance: VEDOLIZUMAB
     Indication: Crohn^s disease
     Dosage: 300 MILLIGRAM
     Route: 042
     Dates: start: 20221027, end: 20231110
  2. Salofalk [Concomitant]
     Dosage: UNK
     Dates: start: 202208
  3. Emolax [Concomitant]
     Dosage: 17 GRAM
     Route: 048
     Dates: start: 20230202

REACTIONS (1)
  - Death [Fatal]
